FAERS Safety Report 16024560 (Version 2)
Quarter: 2019Q1

REPORT INFORMATION
  Report Type: Spontaneous
  Country: FR (occurrence: FR)
  Receive Date: 20190301
  Receipt Date: 20190308
  Transmission Date: 20190418
  Serious: Yes (Hospitalization)
  Sender: FDA-Public Use
  Company Number: FR-PFIZER INC-2019088795

PATIENT
  Age: 14 Year
  Sex: Male

DRUGS (4)
  1. GABAPENTIN. [Concomitant]
     Active Substance: GABAPENTIN
     Indication: CEREBRAL VENOUS THROMBOSIS
     Dosage: UNK
  2. LEVOFOLINATE CALCIUM [Concomitant]
     Active Substance: LEVOLEUCOVORIN CALCIUM
     Indication: ANAL HAEMORRHAGE
     Dosage: UNK
  3. METHOTREXATE SODIUM. [Interacting]
     Active Substance: METHOTREXATE SODIUM
     Indication: CEREBRAL VENOUS THROMBOSIS
     Dosage: UNK (5 G/M2, HIGH DOSE)
  4. LEVETIRACETAM. [Suspect]
     Active Substance: LEVETIRACETAM
     Indication: CEREBRAL VENOUS THROMBOSIS
     Dosage: UNK

REACTIONS (4)
  - Gastrointestinal toxicity [Recovered/Resolved]
  - Skin toxicity [Recovered/Resolved]
  - Haematotoxicity [Recovered/Resolved]
  - Drug interaction [Unknown]
